FAERS Safety Report 11382772 (Version 3)
Quarter: 2015Q4

REPORT INFORMATION
  Report Type: Spontaneous
  Country: US (occurrence: US)
  Receive Date: 20150814
  Receipt Date: 20151123
  Transmission Date: 20160304
  Serious: Yes (Death, Congenital Anomaly)
  Sender: FDA-Public Use
  Company Number: US-ELI_LILLY_AND_COMPANY-US201508003662

PATIENT
  Age: 0 Day
  Sex: Female

DRUGS (1)
  1. PROZAC [Suspect]
     Active Substance: FLUOXETINE HYDROCHLORIDE
     Indication: PRODUCT USED FOR UNKNOWN INDICATION
     Dosage: UNK, UNKNOWN
     Route: 065
     Dates: start: 1991, end: 2000

REACTIONS (7)
  - Congenital cardiovascular anomaly [Unknown]
  - Death [Fatal]
  - Electrocardiogram ST segment elevation [None]
  - Bundle branch block right [None]
  - Dilatation atrial [None]
  - Foetal exposure timing unspecified [None]
  - Sinus tachycardia [None]

NARRATIVE: CASE EVENT DATE: 19941225
